FAERS Safety Report 5727158-6 (Version None)
Quarter: 2008Q2

REPORT INFORMATION
  Report Type: 
  Country: None (occurrence: None)
  Receive Date: 20080505
  Receipt Date: 20080428
  Transmission Date: 20081010
  Serious: Yes (Other)
  Sender: FDA-Public Use
  Company Number: PHEH2008US04105

PATIENT
  Age: 56 Year
  Sex: Male
  Weight: 168.71 kg

DRUGS (8)
  1. COREG [Concomitant]
  2. VYTORIN [Concomitant]
  3. ATACAND [Concomitant]
  4. LASIX [Concomitant]
  5. TEKTURNA [Suspect]
     Indication: HYPERTENSION
     Dosage: 300 MG, QD
     Route: 048
     Dates: start: 20080328
  6. METFORMIN HCL [Concomitant]
  7. AVANDARYL [Concomitant]
  8. BYETTA [Concomitant]

REACTIONS (2)
  - RENAL FAILURE ACUTE [None]
  - WEIGHT DECREASED [None]
